FAERS Safety Report 13286909 (Version 2)
Quarter: 2017Q1

REPORT INFORMATION
  Report Type: Spontaneous
  Country: US (occurrence: US)
  Receive Date: 20170302
  Receipt Date: 20170313
  Transmission Date: 20170428
  Serious: Yes (Hospitalization)
  Sender: FDA-Public Use
  Company Number: US-JNJFOC-20170300148

PATIENT
  Age: 77 Year
  Sex: Male

DRUGS (3)
  1. XARELTO [Suspect]
     Active Substance: RIVAROXABAN
     Indication: THROMBOSIS PROPHYLAXIS
     Dosage: VARYING DOSES OF 20 MG AND 15 MG
     Route: 048
     Dates: start: 20131002, end: 20140613
  2. XARELTO [Suspect]
     Active Substance: RIVAROXABAN
     Indication: ATRIAL FIBRILLATION
     Dosage: VARYING DOSES OF 20 MG AND 15 MG
     Route: 048
     Dates: start: 20131002, end: 20140613
  3. XARELTO [Suspect]
     Active Substance: RIVAROXABAN
     Indication: CEREBROVASCULAR ACCIDENT PROPHYLAXIS
     Dosage: VARYING DOSES OF 20 MG AND 15 MG
     Route: 048
     Dates: start: 20131002, end: 20140613

REACTIONS (2)
  - Upper gastrointestinal haemorrhage [Unknown]
  - Dehydration [Unknown]

NARRATIVE: CASE EVENT DATE: 20140217
